FAERS Safety Report 12193004 (Version 2)
Quarter: 2016Q2

REPORT INFORMATION
  Report Type: Report from Study
  Country: CA (occurrence: CA)
  Receive Date: 20160318
  Receipt Date: 20160407
  Transmission Date: 20160815
  Serious: Yes (Hospitalization)
  Sender: FDA-Public Use
  Company Number: CA-GILEAD-2016-0203149

PATIENT
  Age: 65 Year
  Sex: Male

DRUGS (1)
  1. LEDIPASVIR/SOFOSBUVIR [Suspect]
     Active Substance: LEDIPASVIR\SOFOSBUVIR
     Indication: CHRONIC HEPATITIS C
     Dosage: 1 DF, UNK
     Route: 048
     Dates: start: 20160106

REACTIONS (1)
  - Computerised tomogram liver [Recovered/Resolved]

NARRATIVE: CASE EVENT DATE: 20160309
